FAERS Safety Report 4295629-8 (Version None)
Quarter: 2004Q1

REPORT INFORMATION
  Report Type: 
  Country: None (occurrence: None)
  Receive Date: 20040216
  Receipt Date: 20030804
  Transmission Date: 20041129
  Serious: No
  Sender: FDA-Public Use
  Company Number: US-GLAXOSMITHKLINE-A0419360A

PATIENT
  Age: 9 Year
  Sex: Female
  Weight: 31.8 kg

DRUGS (3)
  1. PAXIL [Suspect]
     Route: 048
     Dates: start: 20030402
  2. DEPAKOTE [Concomitant]
  3. LAMICTAL [Concomitant]

REACTIONS (1)
  - TREMOR [None]
